FAERS Safety Report 21168535 (Version 1)
Quarter: 2022Q3

REPORT INFORMATION
  Report Type: Other
  Country: US (occurrence: None)
  Receive Date: 20220803
  Receipt Date: 20220803
  Transmission Date: 20221027
  Serious: No
  Sender: FDA-Public Use
  Company Number: US-ROCHE-3152010

PATIENT
  Sex: Male

DRUGS (1)
  1. OCREVUS [Suspect]
     Active Substance: OCRELIZUMAB
     Indication: Primary progressive multiple sclerosis
     Dosage: PRESCRIBED AS 300 MG VIALS INFUSE 600 MG EVERY 6 MONTH?14/JUL/2022, 11/JUN/2020.
     Route: 042

REACTIONS (1)
  - COVID-19 [Recovered/Resolved]
